FAERS Safety Report 15304706 (Version 2)
Quarter: 2018Q4

REPORT INFORMATION
  Report Type: Spontaneous
  Country: US (occurrence: US)
  Receive Date: 20180821
  Receipt Date: 20181130
  Transmission Date: 20190204
  Serious: Yes (Other)
  Sender: FDA-Public Use
  Company Number: US-PFIZER INC-2018329320

PATIENT
  Age: 58 Year
  Sex: Female
  Weight: 70.3 kg

DRUGS (3)
  1. ATORVASTATIN [Concomitant]
     Active Substance: ATORVASTATIN
     Indication: BLOOD CHOLESTEROL ABNORMAL
     Dosage: 10 MG, 1X/DAY
     Route: 048
  2. XELJANZ XR [Suspect]
     Active Substance: TOFACITINIB CITRATE
     Indication: ARTHRITIS
     Dosage: 11 MG, 1X/DAY
     Route: 048
     Dates: start: 201801
  3. METOPROLOL. [Concomitant]
     Active Substance: METOPROLOL
     Indication: PALPITATIONS
     Dosage: 25 MG, 1X/DAY
     Route: 048

REACTIONS (2)
  - Ligament rupture [Unknown]
  - Malaise [Unknown]
